FAERS Safety Report 6190129-2 (Version None)
Quarter: 2009Q2

REPORT INFORMATION
  Report Type: 
  Country: None (occurrence: None)
  Receive Date: 20090513
  Receipt Date: 20090513
  Transmission Date: 20091009
  Serious: Yes (Other)
  Sender: FDA-Public Use
  Company Number: None

PATIENT
  Weight: 81.6475 kg

DRUGS (1)
  1. FLUORIDEX DAILY DEFENSE 1.1% SODIUM FLUORIDE DISCUS DENTAL, CULVER CIT [Suspect]
     Indication: SENSITIVITY OF TEETH
     Dosage: EST 1/4 TEASPOON TWICE DAILY DENTAL
     Route: 004
     Dates: start: 20090217, end: 20090302

REACTIONS (5)
  - DIARRHOEA [None]
  - GASTRIC PH DECREASED [None]
  - GASTROINTESTINAL PAIN [None]
  - OESOPHAGEAL DISCOMFORT [None]
  - PAIN [None]
